FAERS Safety Report 9743912 (Version 1)
Quarter: 2013Q4

REPORT INFORMATION
  Report Type: Spontaneous
  Country: US (occurrence: US)
  Receive Date: 20131210
  Receipt Date: 20131210
  Transmission Date: 20140711
  Serious: No
  Sender: FDA-Public Use
  Company Number: US-BIOGENIDEC-2013BI097946

PATIENT
  Age: 46 Year
  Sex: Male

DRUGS (10)
  1. TECFIDERA [Suspect]
     Indication: MULTIPLE SCLEROSIS
     Route: 048
     Dates: start: 20130923
  2. MICARDIS [Concomitant]
  3. LORTAB [Concomitant]
  4. CVS VITAMIN D [Concomitant]
  5. MOTRIN [Concomitant]
  6. BACLOFEN [Concomitant]
  7. CELEXA [Concomitant]
  8. COLACE [Concomitant]
  9. FLEXERIL [Concomitant]
  10. ULTRAM ER [Concomitant]

REACTIONS (2)
  - Dizziness [Unknown]
  - Blood pressure decreased [Unknown]
